FAERS Safety Report 5401741-X (Version None)
Quarter: 2007Q3

REPORT INFORMATION
  Report Type: 
  Country: None (occurrence: None)
  Receive Date: 20070731
  Receipt Date: 20070727
  Transmission Date: 20080115
  Serious: Yes (Death)
  Sender: FDA-Public Use
  Company Number: FR-BRISTOL-MYERS SQUIBB COMPANY-13861745

PATIENT
  Age: 62 Year
  Sex: Female

DRUGS (6)
  1. AMIKLIN [Suspect]
     Route: 042
     Dates: start: 20070625, end: 20070628
  2. CIPROFLOXACIN HCL [Suspect]
     Route: 048
  3. DURAGESIC-100 [Suspect]
     Route: 061
     Dates: start: 20070623, end: 20070628
  4. DI-ANTALVIC [Suspect]
     Dates: start: 20070620, end: 20070628
  5. CLAFORAN [Suspect]
     Route: 042
     Dates: start: 20070621, end: 20070628
  6. MOTILIUM [Suspect]
     Route: 048
     Dates: start: 20070620, end: 20070628

REACTIONS (1)
  - COMPLETED SUICIDE [None]
